FAERS Safety Report 4929043-6 (Version None)
Quarter: 2006Q1

REPORT INFORMATION
  Report Type: 
  Country: None (occurrence: None)
  Receive Date: 20060228
  Receipt Date: 20060228
  Transmission Date: 20060701
  Serious: Yes (Other)
  Sender: FDA-Public Use
  Company Number: None

PATIENT
  Sex: Male

DRUGS (1)
  1. TOPAMAX [Suspect]
     Indication: WEIGHT CONTROL
     Dates: start: 20051201, end: 20060223

REACTIONS (2)
  - ANGLE CLOSURE GLAUCOMA [None]
  - EYE PAIN [None]
